FAERS Safety Report 5290116-2 (Version None)
Quarter: 2007Q1

REPORT INFORMATION
  Report Type: 
  Country: None (occurrence: None)
  Receive Date: 20070330
  Receipt Date: 20070315
  Transmission Date: 20070707
  Serious: Yes (Death, Other)
  Sender: FDA-Public Use
  Company Number: 15971

PATIENT
  Age: 63 Year

DRUGS (5)
  1. VINCRISTINE [Suspect]
     Indication: GLIOBLASTOMA
     Dosage: 1.4 MG/M2 UNK
  2. PROCARBAZINE [Suspect]
     Indication: GLIOBLASTOMA
     Dosage: 100 MG/M2 UNK
  3. ACNU [Suspect]
     Indication: GLIOBLASTOMA
     Dosage: 80 MG/M2 DAILY UNK
  4. CEPHARANTINE [Suspect]
     Indication: GLIOBLASTOMA
     Dosage: 70 MG UNK
  5. RADIOTHERAPY [Concomitant]

REACTIONS (3)
  - NEUTROPENIA [None]
  - PNEUMOCYSTIS JIROVECI PNEUMONIA [None]
  - SEPSIS [None]
